FAERS Safety Report 9351875 (Version 2)
Quarter: 2013Q3

REPORT INFORMATION
  Report Type: Spontaneous
  Country: US (occurrence: US)
  Receive Date: 20130617
  Receipt Date: 20130705
  Transmission Date: 20140515
  Serious: Yes (Other)
  Sender: FDA-Public Use
  Company Number: US-GLAXOSMITHKLINE-A0807565A

PATIENT
  Age: 48 Year
  Sex: Female
  Weight: 74.5 kg

DRUGS (1)
  1. AVANDIA [Suspect]
     Indication: DIABETES MELLITUS
     Route: 048
     Dates: start: 200406, end: 2009

REACTIONS (4)
  - Cardiac disorder [Unknown]
  - Macular oedema [Unknown]
  - Cardiac disorder [Unknown]
  - Visual impairment [Unknown]
